FAERS Safety Report 15988158 (Version 5)
Quarter: 2019Q2

REPORT INFORMATION
  Report Type: Report from Study
  Country: None (occurrence: GR)
  Receive Date: 20190221
  Receipt Date: 20190417
  Transmission Date: 20190711
  Serious: Yes (Hospitalization, Other)
  Sender: FDA-Public Use
  Company Number: GR-ABBVIE-19S-066-2672276-00

PATIENT
  Age: 89 Year
  Sex: Male

DRUGS (4)
  1. SAGILIA [Concomitant]
     Indication: PRODUCT USED FOR UNKNOWN INDICATION
     Route: 048
  2. DUODOPA [Suspect]
     Active Substance: CARBIDOPA\LEVODOPA
     Dosage: MORNING DOSE:6.6ML; CONTINUOUS RATE:1.1ML/H; EXTRA DOSE:1.0ML
     Route: 050
  3. NEUPRO [Concomitant]
     Active Substance: ROTIGOTINE
     Indication: PRODUCT USED FOR UNKNOWN INDICATION
     Route: 048
  4. DUODOPA [Suspect]
     Active Substance: CARBIDOPA\LEVODOPA
     Indication: PARKINSON^S DISEASE
     Dosage: MD:6.6ML; CR:1.3ML/H; ED:1.0ML
     Route: 050
     Dates: start: 20170110

REACTIONS (11)
  - Fall [Recovered/Resolved]
  - Duodenal ulcer [Not Recovered/Not Resolved]
  - Haematocrit decreased [Not Recovered/Not Resolved]
  - Intentional product misuse [Unknown]
  - Faeces discoloured [Not Recovered/Not Resolved]
  - Device kink [Unknown]
  - Gastrointestinal ulcer [Unknown]
  - Device dislocation [Recovered/Resolved]
  - Dizziness [Recovered/Resolved]
  - Device occlusion [Not Recovered/Not Resolved]
  - Stoma site hypergranulation [Not Recovered/Not Resolved]

NARRATIVE: CASE EVENT DATE: 2019
